FAERS Safety Report 23734491 (Version 1)
Quarter: 2024Q2

REPORT INFORMATION
  Report Type: Spontaneous
  Country: US (occurrence: US)
  Receive Date: 20240412
  Receipt Date: 20240412
  Transmission Date: 20240716
  Serious: No
  Sender: FDA-Public Use
  Company Number: US-TEVA-VS-3177123

PATIENT
  Age: 75 Year
  Sex: Male
  Weight: 90.718 kg

DRUGS (2)
  1. QVAR REDIHALER [Suspect]
     Active Substance: BECLOMETHASONE DIPROPIONATE
     Dosage: 80 MCG/DOS
     Route: 065
  2. ALBUTEROL SULFATE [Suspect]
     Active Substance: ALBUTEROL SULFATE
     Indication: Asthma
     Dosage: 90 MCG/DOS
     Route: 065

REACTIONS (3)
  - Drug effect less than expected [Unknown]
  - Product communication issue [Unknown]
  - Product cleaning inadequate [Unknown]
